FAERS Safety Report 25586137 (Version 1)
Quarter: 2025Q3

REPORT INFORMATION
  Report Type: Spontaneous
  Country: EU (occurrence: EU)
  Receive Date: 20250721
  Receipt Date: 20250721
  Transmission Date: 20251020
  Serious: Yes (Hospitalization)
  Sender: MYLAN
  Company Number: None

PATIENT
  Age: 16 Year
  Sex: Female
  Weight: 46 kg

DRUGS (32)
  1. ETOPOSIDE [Suspect]
     Active Substance: ETOPOSIDE
     Indication: Hodgkin^s disease
     Dates: start: 20250304, end: 20250308
  2. ETOPOSIDE [Suspect]
     Active Substance: ETOPOSIDE
     Route: 042
     Dates: start: 20250304, end: 20250308
  3. ETOPOSIDE [Suspect]
     Active Substance: ETOPOSIDE
     Route: 042
     Dates: start: 20250304, end: 20250308
  4. ETOPOSIDE [Suspect]
     Active Substance: ETOPOSIDE
     Dates: start: 20250304, end: 20250308
  5. ONDANSETRON [Suspect]
     Active Substance: ONDANSETRON
     Indication: Nausea
     Dosage: 16 MILLIGRAM, QD
     Dates: start: 20250304
  6. ONDANSETRON [Suspect]
     Active Substance: ONDANSETRON
     Dosage: 16 MILLIGRAM, QD
     Route: 042
     Dates: start: 20250304
  7. ONDANSETRON [Suspect]
     Active Substance: ONDANSETRON
     Dosage: 16 MILLIGRAM, QD
     Route: 042
     Dates: start: 20250304
  8. ONDANSETRON [Suspect]
     Active Substance: ONDANSETRON
     Dosage: 16 MILLIGRAM, QD
     Dates: start: 20250304
  9. DOXORUBICIN [Suspect]
     Active Substance: DOXORUBICIN
     Indication: Hodgkin^s disease
     Dates: start: 20250304, end: 20250304
  10. DOXORUBICIN [Suspect]
     Active Substance: DOXORUBICIN
     Route: 042
     Dates: start: 20250304, end: 20250304
  11. DOXORUBICIN [Suspect]
     Active Substance: DOXORUBICIN
     Route: 042
     Dates: start: 20250304, end: 20250304
  12. DOXORUBICIN [Suspect]
     Active Substance: DOXORUBICIN
     Dates: start: 20250304, end: 20250304
  13. VINCRISTINE SULFATE [Suspect]
     Active Substance: VINCRISTINE SULFATE
     Indication: Hodgkin^s disease
     Dates: start: 20250304, end: 20250304
  14. VINCRISTINE SULFATE [Suspect]
     Active Substance: VINCRISTINE SULFATE
     Route: 042
     Dates: start: 20250304, end: 20250304
  15. VINCRISTINE SULFATE [Suspect]
     Active Substance: VINCRISTINE SULFATE
     Route: 042
     Dates: start: 20250304, end: 20250304
  16. VINCRISTINE SULFATE [Suspect]
     Active Substance: VINCRISTINE SULFATE
     Dates: start: 20250304, end: 20250304
  17. SULFAMETHOXAZOLE\TRIMETHOPRIM [Suspect]
     Active Substance: SULFAMETHOXAZOLE\TRIMETHOPRIM
     Indication: Antibiotic prophylaxis
     Dosage: 3 DOSAGE FORM, QW
     Dates: start: 20250304
  18. SULFAMETHOXAZOLE\TRIMETHOPRIM [Suspect]
     Active Substance: SULFAMETHOXAZOLE\TRIMETHOPRIM
     Dosage: 3 DOSAGE FORM, QW
     Route: 048
     Dates: start: 20250304
  19. SULFAMETHOXAZOLE\TRIMETHOPRIM [Suspect]
     Active Substance: SULFAMETHOXAZOLE\TRIMETHOPRIM
     Dosage: 3 DOSAGE FORM, QW
     Route: 048
     Dates: start: 20250304
  20. SULFAMETHOXAZOLE\TRIMETHOPRIM [Suspect]
     Active Substance: SULFAMETHOXAZOLE\TRIMETHOPRIM
     Dosage: 3 DOSAGE FORM, QW
     Dates: start: 20250304
  21. PREDNISOLONE SODIUM METAZOATE [Suspect]
     Active Substance: PREDNISOLONE SODIUM METAZOATE
     Indication: Hodgkin^s disease
     Dosage: 75 MILLIGRAM, QD
     Dates: start: 20250304, end: 20250319
  22. PREDNISOLONE SODIUM METAZOATE [Suspect]
     Active Substance: PREDNISOLONE SODIUM METAZOATE
     Dosage: 75 MILLIGRAM, QD
     Route: 048
     Dates: start: 20250304, end: 20250319
  23. PREDNISOLONE SODIUM METAZOATE [Suspect]
     Active Substance: PREDNISOLONE SODIUM METAZOATE
     Dosage: 75 MILLIGRAM, QD
     Route: 048
     Dates: start: 20250304, end: 20250319
  24. PREDNISOLONE SODIUM METAZOATE [Suspect]
     Active Substance: PREDNISOLONE SODIUM METAZOATE
     Dosage: 75 MILLIGRAM, QD
     Dates: start: 20250304, end: 20250319
  25. INNOHEP [Suspect]
     Active Substance: TINZAPARIN SODIUM
     Indication: Jugular vein thrombosis
     Dosage: 8000 INTERNATIONAL UNIT, QD
     Dates: start: 20250207, end: 20250314
  26. INNOHEP [Suspect]
     Active Substance: TINZAPARIN SODIUM
     Dosage: 8000 INTERNATIONAL UNIT, QD
     Route: 058
     Dates: start: 20250207, end: 20250314
  27. INNOHEP [Suspect]
     Active Substance: TINZAPARIN SODIUM
     Dosage: 8000 INTERNATIONAL UNIT, QD
     Route: 058
     Dates: start: 20250207, end: 20250314
  28. INNOHEP [Suspect]
     Active Substance: TINZAPARIN SODIUM
     Dosage: 8000 INTERNATIONAL UNIT, QD
     Dates: start: 20250207, end: 20250314
  29. TRIPTORELIN PAMOATE [Suspect]
     Active Substance: TRIPTORELIN PAMOATE
     Indication: Controlled ovarian stimulation
     Dosage: 1 DOSAGE FORM, MONTHLY (PROLONGED-RELEASE FORM OVER 28 DAYS)
     Dates: start: 20250306, end: 20250306
  30. TRIPTORELIN PAMOATE [Suspect]
     Active Substance: TRIPTORELIN PAMOATE
     Dosage: 1 DOSAGE FORM, MONTHLY (PROLONGED-RELEASE FORM OVER 28 DAYS)
     Route: 058
     Dates: start: 20250306, end: 20250306
  31. TRIPTORELIN PAMOATE [Suspect]
     Active Substance: TRIPTORELIN PAMOATE
     Dosage: 1 DOSAGE FORM, MONTHLY (PROLONGED-RELEASE FORM OVER 28 DAYS)
     Route: 058
     Dates: start: 20250306, end: 20250306
  32. TRIPTORELIN PAMOATE [Suspect]
     Active Substance: TRIPTORELIN PAMOATE
     Dosage: 1 DOSAGE FORM, MONTHLY (PROLONGED-RELEASE FORM OVER 28 DAYS)
     Dates: start: 20250306, end: 20250306

REACTIONS (2)
  - Inappropriate antidiuretic hormone secretion [Recovered/Resolved]
  - Febrile bone marrow aplasia [Recovered/Resolved]

NARRATIVE: CASE EVENT DATE: 20250312
